FAERS Safety Report 6447066-5 (Version None)
Quarter: 2009Q4

REPORT INFORMATION
  Report Type: 
  Country: None (occurrence: None)
  Receive Date: 20091119
  Receipt Date: 20091102
  Transmission Date: 20100525
  Serious: Yes (Other)
  Sender: FDA-Public Use
  Company Number: US-SANOFI-AVENTIS-2009SA000613

PATIENT
  Age: 78 Year
  Sex: Male

DRUGS (6)
  1. MULTAQ [Suspect]
     Indication: ATRIAL FLUTTER
     Route: 048
     Dates: start: 20090903
  2. KLOR-CON [Concomitant]
     Route: 048
  3. COUMADIN [Concomitant]
     Route: 048
  4. LOPRESSOR [Concomitant]
     Route: 048
  5. LITHIUM [Concomitant]
     Route: 048
  6. PROZAC [Concomitant]
     Route: 048

REACTIONS (5)
  - CARDIAC FAILURE CONGESTIVE [None]
  - DYSPNOEA [None]
  - GENERALISED OEDEMA [None]
  - RALES [None]
  - WEIGHT INCREASED [None]
